FAERS Safety Report 10501999 (Version 1)
Quarter: 2014Q4

REPORT INFORMATION
  Report Type: Spontaneous
  Country: US (occurrence: US)
  Receive Date: 20141007
  Receipt Date: 20141007
  Transmission Date: 20150528
  Serious: No
  Sender: FDA-Public Use
  Company Number: US-009507513-1409USA011080

PATIENT
  Sex: Female

DRUGS (3)
  1. PEGINTRON [Suspect]
     Active Substance: PEGINTERFERON ALFA-2B
     Indication: HEPATITIS C
     Dosage: 80 MICROGRAM, QW
     Route: 058
     Dates: start: 201408
  2. SOVALDI [Suspect]
     Active Substance: SOFOSBUVIR
     Dosage: 400 MG DAILY
     Route: 048
     Dates: start: 201408
  3. REBETOL [Suspect]
     Active Substance: RIBAVIRIN
     Dosage: TWO 200 MG TABLETS TWICE PER DAY
     Route: 048
     Dates: start: 201408

REACTIONS (6)
  - Vomiting [Unknown]
  - Nausea [Unknown]
  - Decreased appetite [Unknown]
  - Fatigue [Unknown]
  - Depressed mood [Unknown]
  - Headache [Unknown]

NARRATIVE: CASE EVENT DATE: 2014
